FAERS Safety Report 8549758-0 (Version None)
Quarter: 2012Q3

REPORT INFORMATION
  Report Type: 
  Country: None (occurrence: None)
  Receive Date: 20120730
  Receipt Date: 20120727
  Transmission Date: 20120928
  Serious: Yes (Other)
  Sender: FDA-Public Use
  Company Number: US-PFIZER INC-2012102260

PATIENT
  Age: 61 Year
  Sex: Female
  Weight: 64.853 kg

DRUGS (3)
  1. PROAIR HFA [Concomitant]
     Indication: ASTHMA
     Dosage: UNK, DAILY
  2. CHANTIX [Suspect]
     Indication: SMOKING CESSATION THERAPY
     Dosage: 0.5MG ONCE
     Route: 048
     Dates: start: 20120424
  3. CHANTIX [Suspect]
     Dosage: UNK
     Route: 048

REACTIONS (4)
  - THROMBOSIS [None]
  - DYSPHONIA [None]
  - PULMONARY THROMBOSIS [None]
  - LUNG DISORDER [None]
